FAERS Safety Report 22007479 (Version 1)
Quarter: 2023Q1

REPORT INFORMATION
  Report Type: Spontaneous
  Country: JP (occurrence: JP)
  Receive Date: 20230218
  Receipt Date: 20230218
  Transmission Date: 20230418
  Serious: Yes (Hospitalization, Congenital Anomaly)
  Sender: FDA-Public Use
  Company Number: JP-002147023-NVSJ2023JP003280

PATIENT

DRUGS (1)
  1. AMOXICILLIN [Suspect]
     Active Substance: AMOXICILLIN
     Indication: Foetal exposure during pregnancy
     Dosage: MATERNAL EXPOSURE DURING PREGNANCY: 1000 MG/DAY
     Route: 064

REACTIONS (6)
  - Neonatal asphyxia [Unknown]
  - Premature baby [Unknown]
  - Low birth weight baby [Unknown]
  - Congenital syphilis [Recovering/Resolving]
  - Pancytopenia [Recovering/Resolving]
  - Foetal exposure during pregnancy [Unknown]
